FAERS Safety Report 6538600-5 (Version None)
Quarter: 2010Q1

REPORT INFORMATION
  Report Type: 
  Country: None (occurrence: None)
  Receive Date: 20100113
  Receipt Date: 20100113
  Transmission Date: 20100710
  Serious: No
  Sender: FDA-Public Use
  Company Number: None

PATIENT
  Age: 36 Year
  Sex: Female

DRUGS (6)
  1. OXYCODONE HCL [Suspect]
     Indication: PROCEDURAL PAIN
     Dosage: 10MG Q4 PRN PO
     Route: 048
     Dates: start: 20091230, end: 20091231
  2. DURAGESIC-100 [Suspect]
     Dosage: 25MCG Q72? TOP
     Route: 061
  3. ATIVAN [Concomitant]
  4. PHENERGAU [Concomitant]
  5. MORPHINE [Concomitant]
  6. DURAGESIC-100 [Concomitant]

REACTIONS (6)
  - BLOOD PRESSURE DECREASED [None]
  - HEART RATE DECREASED [None]
  - LETHARGY [None]
  - LOSS OF CONSCIOUSNESS [None]
  - OXYGEN SATURATION DECREASED [None]
  - RESPIRATORY RATE DECREASED [None]
